FAERS Safety Report 5325032-0 (Version None)
Quarter: 2007Q2

REPORT INFORMATION
  Report Type: 
  Country: None (occurrence: None)
  Receive Date: 20070515
  Receipt Date: 20070511
  Transmission Date: 20071010
  Serious: Yes (Other)
  Sender: FDA-Public Use
  Company Number: AT-BRISTOL-MYERS SQUIBB COMPANY-13777115

PATIENT
  Sex: Female

DRUGS (1)
  1. SPRYCEL (PH+ALL) TABS 50 MG [Suspect]
     Indication: ACUTE LYMPHOCYTIC LEUKAEMIA RECURRENT
     Dates: start: 20070101, end: 20070501

REACTIONS (1)
  - ALVEOLITIS FIBROSING [None]
